FAERS Safety Report 9960033 (Version 1)
Quarter: 2014Q1

REPORT INFORMATION
  Report Type: Report from Study
  Country: US (occurrence: US)
  Receive Date: 20140305
  Receipt Date: 20140305
  Transmission Date: 20141002
  Serious: No
  Sender: FDA-Public Use
  Company Number: US-ABBVIE-13P-163-1101375-00

PATIENT
  Age: 58 Year
  Sex: Female

DRUGS (11)
  1. HUMIRA [Suspect]
     Indication: CROHN^S DISEASE
     Dates: start: 20130516, end: 20130516
  2. HUMIRA [Suspect]
     Dates: start: 20130530, end: 20130530
  3. HUMIRA [Suspect]
  4. OMEPRAZOLE [Concomitant]
     Indication: GASTROOESOPHAGEAL REFLUX DISEASE
  5. OPANA [Concomitant]
     Indication: PAIN
  6. OXYCODONE [Concomitant]
     Indication: PAIN
  7. PERCOGESIC [Concomitant]
     Indication: INSOMNIA
     Dosage: AT NIGHT
  8. ZYRTEC [Concomitant]
     Indication: HYPERSENSITIVITY
     Dosage: DAILY
  9. BUPROPION HCL ER [Concomitant]
     Indication: DEPRESSION
  10. ZANTAC [Concomitant]
     Indication: PRODUCT USED FOR UNKNOWN INDICATION
  11. PREDNISONE [Concomitant]
     Indication: PRODUCT USED FOR UNKNOWN INDICATION

REACTIONS (3)
  - Osteoporosis [Unknown]
  - Injection site reaction [Recovered/Resolved]
  - Upper respiratory tract infection [Not Recovered/Not Resolved]
